FAERS Safety Report 7572895-4 (Version None)
Quarter: 2011Q2

REPORT INFORMATION
  Report Type: 
  Country: None (occurrence: None)
  Receive Date: 20110627
  Receipt Date: 20110615
  Transmission Date: 20111010
  Serious: Yes (Hospitalization, Other)
  Sender: FDA-Public Use
  Company Number: CA-ELI_LILLY_AND_COMPANY-CA201106004269

PATIENT
  Sex: Male

DRUGS (15)
  1. ZYPREXA [Suspect]
     Dosage: 20 MG, QD
  2. VALPROATE SODIUM [Concomitant]
  3. HALOPERIDOL [Concomitant]
  4. ATIVAN [Concomitant]
  5. ZYPREXA [Suspect]
     Dosage: 15 MG, QD
  6. ZYPREXA [Suspect]
     Indication: SCHIZOPHRENIA
     Dosage: 10 MG, QD
  7. WELLBUTRIN [Concomitant]
  8. THIAMINE [Concomitant]
  9. ZYPREXA ZYDIS [Suspect]
     Indication: SCHIZOPHRENIA
     Dosage: 15 MG, QD
  10. ASAPHEN [Concomitant]
  11. ZYPREXA [Suspect]
     Dosage: 5 MG, QD
  12. ABILIFY [Concomitant]
  13. LOXAPINE HCL [Concomitant]
  14. CLONAZEPAM [Concomitant]
  15. COGENTIN [Concomitant]

REACTIONS (10)
  - HYPERCHOLESTEROLAEMIA [None]
  - DIABETIC KETOACIDOSIS [None]
  - CATARACT [None]
  - ELECTROCARDIOGRAM QT PROLONGED [None]
  - TACHYCARDIA [None]
  - DIABETIC RETINOPATHY [None]
  - DIABETES MELLITUS [None]
  - BLINDNESS [None]
  - HYPERTENSION [None]
  - WEIGHT INCREASED [None]
